FAERS Safety Report 13144321 (Version 1)
Quarter: 2017Q1

REPORT INFORMATION
  Report Type: Spontaneous
  Country: US (occurrence: US)
  Receive Date: 20170124
  Receipt Date: 20170124
  Transmission Date: 20170428
  Serious: No
  Sender: FDA-Public Use
  Company Number: US-BEH-2017077433

PATIENT
  Age: 7 Year
  Sex: Female
  Weight: 17.42 kg

DRUGS (5)
  1. MVI [Concomitant]
     Active Substance: VITAMINS
     Route: 065
  2. STIMATE [Concomitant]
     Active Substance: DESMOPRESSIN ACETATE
     Indication: PRODUCT USED FOR UNKNOWN INDICATION
     Route: 045
  3. AMICAR [Concomitant]
     Active Substance: AMINOCAPROIC ACID
     Dosage: 4 ML, PRN EVERY 6 HOURS
     Route: 048
  4. HAEMATE P [Suspect]
     Active Substance: ANTIHEMOPHILIC FACTOR HUMAN
     Indication: VON WILLEBRAND^S DISEASE
     Dosage: 1000 RCOF IU, PRN, ONCE WEEKLY
     Route: 065
     Dates: start: 20150211
  5. FERROUS SULFATE. [Concomitant]
     Active Substance: FERROUS SULFATE
     Dosage: UNK UNK, QD
     Route: 065

REACTIONS (1)
  - Abdominal pain [Recovered/Resolved]

NARRATIVE: CASE EVENT DATE: 20170115
